FAERS Safety Report 16941440 (Version 1)
Quarter: 2019Q4

REPORT INFORMATION
  Report Type: Spontaneous
  Country: US (occurrence: US)
  Receive Date: 20190829
  Receipt Date: 20190829
  Transmission Date: 20200122
  Serious: No
  Sender: FDA-Public Use
  Company Number: None

PATIENT
  Age: 61 Year
  Sex: Female

DRUGS (1)
  1. HUMIRA [Suspect]
     Active Substance: ADALIMUMAB
     Indication: CROHN^S DISEASE
     Route: 058
     Dates: start: 20180717

REACTIONS (9)
  - Vaginal disorder [None]
  - Condition aggravated [None]
  - Incontinence [None]
  - Hepatic cirrhosis [None]
  - Skin ulcer [None]
  - Nausea [None]
  - Joint swelling [None]
  - Fatigue [None]
  - Acne [None]

NARRATIVE: CASE EVENT DATE: 20190818
